FAERS Safety Report 25213340 (Version 2)
Quarter: 2025Q2

REPORT INFORMATION
  Report Type: Spontaneous
  Country: ES (occurrence: ES)
  Receive Date: 20250418
  Receipt Date: 20250425
  Transmission Date: 20250717
  Serious: Yes (Other)
  Sender: PFIZER
  Company Number: None

PATIENT
  Age: 60 Year
  Sex: Female

DRUGS (4)
  1. CARBOPLATIN [Suspect]
     Active Substance: CARBOPLATIN
     Indication: Breast neoplasm
     Route: 042
     Dates: start: 20240307, end: 20240618
  2. PACLITAXEL [Suspect]
     Active Substance: PACLITAXEL
     Indication: Breast neoplasm
     Dosage: 8 MG/M2, WEEKLY
     Route: 042
     Dates: start: 20240417, end: 20240618
  3. ADO-TRASTUZUMAB EMTANSINE [Suspect]
     Active Substance: ADO-TRASTUZUMAB EMTANSINE
     Indication: Breast neoplasm
     Dosage: 3.6 MG/KG, EVERY 3 WEEKS
     Route: 042
     Dates: start: 20240913, end: 20250121
  4. PHESGO [Suspect]
     Active Substance: HYALURONIDASE-ZZXF\PERTUZUMAB\TRASTUZUMAB
     Indication: Breast neoplasm
     Route: 042
     Dates: start: 20240307, end: 20240703

REACTIONS (2)
  - Neurotoxicity [Not Recovered/Not Resolved]
  - Off label use [Unknown]

NARRATIVE: CASE EVENT DATE: 20240417
